FAERS Safety Report 7880784-0 (Version None)
Quarter: 2011Q4

REPORT INFORMATION
  Report Type: 
  Country: None (occurrence: None)
  Receive Date: 20111101
  Receipt Date: 20111026
  Transmission Date: 20120403
  Serious: Yes (Death, Hospitalization, Other)
  Sender: FDA-Public Use
  Company Number: PHEH2009US03382

PATIENT
  Sex: Male
  Weight: 63.5 kg

DRUGS (34)
  1. PENICILLIN [Concomitant]
  2. BUPROPION HCL [Concomitant]
  3. FLOMAX [Concomitant]
  4. PREDNISONE [Concomitant]
  5. TEMSIROLIMUS [Concomitant]
     Dates: start: 20080109, end: 20080109
  6. AREDIA [Suspect]
     Dosage: 90 MG, QMO
     Dates: start: 20040930, end: 20060706
  7. HYDROCHLOROTHIAZIDE [Concomitant]
  8. VASOTEC [Concomitant]
  9. TEMAZEPAM [Concomitant]
  10. VARDENAFIL [Concomitant]
     Dates: start: 20060302, end: 20070303
  11. SILDENAFIL CITRATE [Concomitant]
     Dates: start: 20051214, end: 20061215
  12. ENALAPRIL [Concomitant]
  13. LISINOPRIL [Concomitant]
  14. PERIDEX [Concomitant]
  15. INTERFERON ALFA-2B [Concomitant]
  16. CALCITONIN SALMON [Concomitant]
  17. CEFTRIAXONE [Concomitant]
     Dosage: UNK, UNK
  18. RANITIDINE [Concomitant]
  19. SUTENT [Concomitant]
  20. ZOMETA [Suspect]
     Dosage: 4 MG, QMO
     Route: 042
  21. LOVENOX [Concomitant]
  22. OXYCONTIN [Concomitant]
  23. ATENOLOL [Concomitant]
  24. DIPHENHYDRAMINE HCL [Concomitant]
  25. FLUCONAZOLE [Concomitant]
  26. BEVACIZUMAB [Concomitant]
  27. CLONIDINE [Concomitant]
     Indication: HYPERTENSION
  28. TYLENOL-500 [Concomitant]
  29. MORPHINE SULFATE [Concomitant]
  30. LASIX [Concomitant]
  31. MAGNESIUM OXIDE [Concomitant]
  32. CLINDAMYCIN [Concomitant]
  33. NYSTATIN [Concomitant]
  34. MEGESTROL ACETATE [Concomitant]
     Dosage: 40 MG, UNK

REACTIONS (85)
  - INFLUENZA LIKE ILLNESS [None]
  - NEPHROLITHIASIS [None]
  - RASH [None]
  - SPINAL OSTEOARTHRITIS [None]
  - LYMPHOEDEMA [None]
  - ANHEDONIA [None]
  - BLOOD URINE PRESENT [None]
  - LUNG NEOPLASM [None]
  - ARTHRALGIA [None]
  - ACETABULUM FRACTURE [None]
  - ELECTROCARDIOGRAM ST SEGMENT DEPRESSION [None]
  - BRADYCARDIA [None]
  - HYPERPARATHYROIDISM [None]
  - PAIN IN EXTREMITY [None]
  - MOUTH ULCERATION [None]
  - NEOPLASM MALIGNANT [None]
  - CHRONIC OBSTRUCTIVE PULMONARY DISEASE [None]
  - HYPOPHOSPHATAEMIA [None]
  - DIZZINESS [None]
  - MYALGIA [None]
  - POLLAKIURIA [None]
  - OSTEOARTHRITIS [None]
  - AZOTAEMIA [None]
  - CEREBRAL ARTERY THROMBOSIS [None]
  - DYSPNOEA [None]
  - IMPAIRED HEALING [None]
  - HYPOKALAEMIA [None]
  - CACHEXIA [None]
  - DEPRESSION [None]
  - PRURITUS [None]
  - PANCREATITIS [None]
  - HEADACHE [None]
  - ASTHENIA [None]
  - PLEURAL EFFUSION [None]
  - PRESYNCOPE [None]
  - TOOTH LOSS [None]
  - SINUS TACHYCARDIA [None]
  - THROMBOCYTOPENIA [None]
  - HYPERMAGNESAEMIA [None]
  - ANXIETY [None]
  - PUBIS FRACTURE [None]
  - OSTEITIS DEFORMANS [None]
  - RENAL FAILURE ACUTE [None]
  - ANAEMIA [None]
  - HILAR LYMPHADENOPATHY [None]
  - METASTASES TO BONE [None]
  - OSTEOPOROSIS [None]
  - ATELECTASIS [None]
  - BONE PAIN [None]
  - ABDOMINAL PAIN UPPER [None]
  - DIARRHOEA [None]
  - CONSTIPATION [None]
  - ERECTILE DYSFUNCTION [None]
  - OSTEONECROSIS OF JAW [None]
  - DISABILITY [None]
  - PAIN [None]
  - INTERVERTEBRAL DISC PROTRUSION [None]
  - HYPERCALCAEMIA [None]
  - OSTEOLYSIS [None]
  - NEOPLASM PROGRESSION [None]
  - ADRENAL NEOPLASM [None]
  - MUSCULOSKELETAL DISCOMFORT [None]
  - VISUAL IMPAIRMENT [None]
  - PANCREATIC CALCIFICATION [None]
  - HAEMATOCHEZIA [None]
  - HYPOTENSION [None]
  - PNEUMONIA [None]
  - GASTROOESOPHAGEAL REFLUX DISEASE [None]
  - INJURY [None]
  - DYSPEPSIA [None]
  - METASTASES TO LUNG [None]
  - INSOMNIA [None]
  - PULMONARY EMBOLISM [None]
  - HYPERKALAEMIA [None]
  - DEATH [None]
  - DEEP VEIN THROMBOSIS [None]
  - WEIGHT DECREASED [None]
  - ADENOCARCINOMA [None]
  - HEPATIC LESION [None]
  - EXPOSED BONE IN JAW [None]
  - HYPERHIDROSIS [None]
  - OSTEOMYELITIS [None]
  - ORAL CANDIDIASIS [None]
  - HYPOXIA [None]
  - ELECTROCARDIOGRAM T WAVE ABNORMAL [None]
